FAERS Safety Report 6252320-6 (Version None)
Quarter: 2009Q2

REPORT INFORMATION
  Report Type: 
  Country: None (occurrence: None)
  Receive Date: 20090629
  Receipt Date: 20090629
  Transmission Date: 20091009
  Serious: No
  Sender: FDA-Public Use
  Company Number: None

PATIENT
  Age: 31 Year
  Sex: Female
  Weight: 88.4514 kg

DRUGS (2)
  1. RHOPHYLAC [Suspect]
     Indication: PREGNANCY
     Dates: start: 20090625, end: 20090625
  2. RHOPHYLAC [Suspect]
     Indication: RHESUS ANTIBODIES NEGATIVE
     Dates: start: 20090625, end: 20090625

REACTIONS (7)
  - ASTHENIA [None]
  - DIZZINESS [None]
  - FATIGUE [None]
  - FEELING ABNORMAL [None]
  - HEADACHE [None]
  - HYPOPHAGIA [None]
  - NAUSEA [None]
